FAERS Safety Report 6027905-2 (Version None)
Quarter: 2008Q4

REPORT INFORMATION
  Report Type: 
  Country: None (occurrence: None)
  Receive Date: 20081230
  Receipt Date: 20081212
  Transmission Date: 20090506
  Serious: Yes (Hospitalization)
  Sender: FDA-Public Use
  Company Number: GXKR2008FR11968

PATIENT
  Age: 49 Year
  Sex: Male

DRUGS (7)
  1. VANCOMYCIN [Suspect]
     Indication: ENDOCARDITIS
     Dosage: 4 MG, QD, INTRAVENOUS; 4.5 MG, QD, INTRAVENOUS
     Route: 042
     Dates: end: 20081114
  2. VANCOMYCIN [Suspect]
     Indication: ENDOCARDITIS
     Dosage: 4 MG, QD, INTRAVENOUS; 4.5 MG, QD, INTRAVENOUS
     Route: 042
     Dates: start: 20081024
  3. DOXYCYCLINE [Suspect]
     Indication: CORYNEBACTERIUM INFECTION
     Dosage: 200 MG, QD, ORAL
     Route: 048
     Dates: start: 20081111, end: 20081114
  4. TARGOCID [Suspect]
     Indication: CORYNEBACTERIUM INFECTION
     Dosage: 900 MG, BID, INTRAVENOUS
     Route: 042
     Dates: start: 20081117, end: 20081118
  5. GENTAMICIN [Concomitant]
  6. RIFAMIPICINE [Concomitant]
  7. LEVOFLOXACIN [Concomitant]

REACTIONS (5)
  - CORYNEBACTERIUM INFECTION [None]
  - CYTOLYTIC HEPATITIS [None]
  - DRUG RASH WITH EOSINOPHILIA AND SYSTEMIC SYMPTOMS [None]
  - HYPERSENSITIVITY [None]
  - RENAL FAILURE [None]
